FAERS Safety Report 11700254 (Version 3)
Quarter: 2017Q1

REPORT INFORMATION
  Report Type: Spontaneous
  Country: US (occurrence: US)
  Receive Date: 20151105
  Receipt Date: 20170309
  Transmission Date: 20170428
  Serious: No
  Sender: FDA-Public Use
  Company Number: US-PFIZER INC-2015360219

PATIENT
  Age: 59 Year
  Sex: Female

DRUGS (6)
  1. VITAMIN D [Concomitant]
     Active Substance: CHOLECALCIFEROL
     Dosage: UNK
  2. IBRANCE [Suspect]
     Active Substance: PALBOCICLIB
     Indication: BREAST CANCER FEMALE
     Dosage: 125 MG, CYCLIC (1 CAPSULE BY MOUTH ONCE A DAY 21 DAYS ON AND 7 DAYS OFF EVERY 28 DAYS)
     Route: 048
  3. IBRANCE [Suspect]
     Active Substance: PALBOCICLIB
     Dosage: 100 MG, CYCLIC (1 CAPSULE BY MOUTH ONCE A DAY 21 DAYS ON AND 7 DAYS OFF EVERY 28 DAYS)
     Route: 048
     Dates: start: 20150716
  4. PROBIOTIC [Concomitant]
     Active Substance: PROBIOTICS NOS
     Dosage: UNK
  5. CALCIUM [Concomitant]
     Active Substance: CALCIUM
     Dosage: UNK
  6. FEMARA [Concomitant]
     Active Substance: LETROZOLE
     Dosage: UNK

REACTIONS (18)
  - Eyelid oedema [Unknown]
  - Eyelid rash [Unknown]
  - Abdominal distension [Unknown]
  - Oedema [Unknown]
  - Eyelid irritation [Unknown]
  - Weight increased [Unknown]
  - Limb discomfort [Unknown]
  - Stomatitis [Recovered/Resolved]
  - Lacrimation increased [Unknown]
  - Eye pruritus [Unknown]
  - Burning sensation [Unknown]
  - Oral mucosal blistering [Recovered/Resolved]
  - Onychoclasis [Unknown]
  - Fluid retention [Unknown]
  - Platelet count decreased [Unknown]
  - Pruritus [Unknown]
  - Fatigue [Unknown]
  - Abdominal symptom [Unknown]
